FAERS Safety Report 5724038-7 (Version None)
Quarter: 2008Q2

REPORT INFORMATION
  Report Type: 
  Country: None (occurrence: None)
  Receive Date: 20080428
  Receipt Date: 20080414
  Transmission Date: 20081010
  Serious: Yes (Other)
  Sender: FDA-Public Use
  Company Number: 237102K07USA

PATIENT
  Age: 70 Year
  Sex: Male

DRUGS (15)
  1. REBIF [Suspect]
     Indication: MULTIPLE SCLEROSIS
     Dosage: 44 MCG, 3 IN 1 WEEKS, SUBCUTANEOUS; 8.8 MCG, 3 IN 1 WEEKS, SUBCUTANEOUS
     Route: 058
     Dates: start: 20070723, end: 20071201
  2. REBIF [Suspect]
     Indication: MULTIPLE SCLEROSIS
     Dosage: 44 MCG, 3 IN 1 WEEKS, SUBCUTANEOUS; 8.8 MCG, 3 IN 1 WEEKS, SUBCUTANEOUS
     Route: 058
     Dates: start: 20080401
  3. GLUCOPHAGE ER (METFORMIN /00082701/) [Concomitant]
  4. PLAVIX [Concomitant]
  5. PENTOXIFYLLIN (PENTOXIFYLLINE) [Concomitant]
  6. AMARYL [Concomitant]
  7. NEXIUM [Concomitant]
  8. ZETIA [Concomitant]
  9. FLOMAX (MORNIFLUMATE) [Concomitant]
  10. PROPO-N/APAP (PROPACET) [Concomitant]
  11. AMBIEN [Concomitant]
  12. NEURONTIN [Concomitant]
  13. CENTRUM SILVER (CENTRUM SILVER) [Concomitant]
  14. SENNA (SENNA ALEXANDRINA) [Concomitant]
  15. ADDERALL XR (OBETROL /01345401/) [Concomitant]

REACTIONS (5)
  - ASTHENIA [None]
  - DYSSTASIA [None]
  - GAIT DISTURBANCE [None]
  - MOBILITY DECREASED [None]
  - NON-SMALL CELL LUNG CANCER STAGE IIIA [None]
